FAERS Safety Report 9751816 (Version 3)
Quarter: 2014Q1

REPORT INFORMATION
  Report Type: Report from Study
  Country: CA (occurrence: CA)
  Receive Date: 20131213
  Receipt Date: 20140312
  Transmission Date: 20141002
  Serious: Yes (Other)
  Sender: FDA-Public Use
  Company Number: CA-ROCHE-1249457

PATIENT
  Age: 62 Year
  Sex: Female
  Weight: 73 kg

DRUGS (14)
  1. ACTEMRA [Suspect]
     Indication: RHEUMATOID ARTHRITIS
     Route: 042
     Dates: start: 20130604
  2. METHOTREXATE [Concomitant]
     Route: 065
     Dates: end: 20131030
  3. PREDNISONE [Concomitant]
  4. FOLIC ACID [Concomitant]
  5. ATENOLOL [Concomitant]
  6. ESTRADIOL [Concomitant]
  7. TRAZODONE [Concomitant]
  8. CLONAZEPAM [Concomitant]
  9. TECTA [Concomitant]
  10. ACTONEL [Concomitant]
  11. TYLENOL EXTRA STRENGTH [Concomitant]
  12. RISEDRONATE [Concomitant]
  13. NITRO SPRAY [Concomitant]
  14. NASONEX [Concomitant]

REACTIONS (14)
  - Cerebrovascular accident [Unknown]
  - Breast cyst [Unknown]
  - Wheezing [Unknown]
  - Sinusitis [Recovering/Resolving]
  - Laryngitis [Recovering/Resolving]
  - Hypertension [Unknown]
  - Diarrhoea [Unknown]
  - Vomiting [Unknown]
  - Paraesthesia [Unknown]
  - Hypoaesthesia [Unknown]
  - Balance disorder [Unknown]
  - Visual impairment [Unknown]
  - Stress [Unknown]
  - Malaise [Unknown]
